FAERS Safety Report 10790823 (Version 1)
Quarter: 2015Q1

REPORT INFORMATION
  Report Type: Spontaneous
  Country: FR (occurrence: FR)
  Receive Date: 20150212
  Receipt Date: 20150212
  Transmission Date: 20150721
  Serious: Yes (Hospitalization, Other)
  Sender: FDA-Public Use
  Company Number: FR-PFIZER INC-2015054428

PATIENT
  Age: 69 Year
  Sex: Male

DRUGS (18)
  1. MOPRAL [Suspect]
     Active Substance: OMEPRAZOLE SODIUM
     Dosage: 20 MG, DAILY
     Route: 048
     Dates: start: 201412, end: 20150114
  2. LANTUS SOLOSTAR [Suspect]
     Active Substance: INSULIN GLARGINE
     Indication: TYPE 2 DIABETES MELLITUS
     Dosage: 10 IU, 1X/DAY
     Route: 058
     Dates: start: 20141202, end: 20150114
  3. ESIDREX [Concomitant]
     Active Substance: HYDROCHLOROTHIAZIDE
     Dosage: 25 MG, DAILY
  4. PLAVIX [Concomitant]
     Active Substance: CLOPIDOGREL BISULFATE
     Dosage: 75 MG, DAILY
     Dates: start: 2007
  5. BISOPROLOL FUMARATE/HYDROCHLOROTHIAZIDE [Concomitant]
     Dosage: 1 DF (5/6.25 MG), DAILY
     Dates: start: 2008, end: 20150114
  6. VOLTARENE [Suspect]
     Active Substance: DICLOFENAC SODIUM
     Dosage: 50 MG, 3X/DAY
     Route: 048
     Dates: start: 201412
  7. TAHOR [Concomitant]
     Active Substance: ATORVASTATIN CALCIUM
     Dosage: 40 MG, DAILY
     Dates: start: 2008
  8. COTAREG [Concomitant]
     Active Substance: HYDROCHLOROTHIAZIDE\VALSARTAN
     Dosage: 1 DF (160/25 MG), DAILY
     Dates: end: 20150114
  9. LYRICA [Suspect]
     Active Substance: PREGABALIN
     Dosage: 25 MG, UNK
     Route: 048
     Dates: start: 20150128
  10. LANTUS SOLOSTAR [Suspect]
     Active Substance: INSULIN GLARGINE
     Dosage: 10 IU, 1X/DAY
     Route: 058
     Dates: start: 20150116
  11. PARACETAMOL [Suspect]
     Active Substance: ACETAMINOPHEN
     Indication: PAIN
     Dosage: 1 G FOUR TIMES DAILY, AS NEEDED
     Route: 048
     Dates: start: 201412, end: 20150108
  12. SMECTA [Suspect]
     Active Substance: MONTMORILLONITE
     Indication: DIARRHOEA
     Dosage: UNK, AS NEEDED
     Route: 048
     Dates: start: 201412
  13. TRIATEC [Concomitant]
     Active Substance: RAMIPRIL
     Dosage: 10 MG (TWO DOSAGE FORMS OF 5 MG), DAILY
     Dates: end: 20150114
  14. LYRICA [Suspect]
     Active Substance: PREGABALIN
     Indication: DIABETIC NEUROPATHY
     Dosage: 50 MG, DAILY
     Route: 048
     Dates: start: 201412, end: 20150114
  15. AMLOR [Concomitant]
     Active Substance: AMLODIPINE BESYLATE
     Dosage: 10 MG (TWO DOSAGE FORMS OF 5 MG), DAILY
     Dates: start: 2008
  16. LAMICTAL [Concomitant]
     Active Substance: LAMOTRIGINE
     Dosage: 200 MG (TWO DOSAGE FORMS OF 100 MG), DAILY
     Dates: start: 2008
  17. DIFFU K [Concomitant]
     Active Substance: POTASSIUM CHLORIDE
     Dosage: 1200 MG (TWO DOSAGE FORMS OF 600 MG), DAILY
  18. NOVONORM [Concomitant]
     Active Substance: REPAGLINIDE
     Dosage: 3 MG (THREE DOSAGE FORMS OF 1 MG), DAILY
     Dates: start: 2007

REACTIONS (5)
  - Femoral artery occlusion [Unknown]
  - Delirium tremens [Unknown]
  - Cyanosis [Unknown]
  - Skin necrosis [Recovering/Resolving]
  - Peripheral arterial occlusive disease [Unknown]

NARRATIVE: CASE EVENT DATE: 20141225
